FAERS Safety Report 6938390-8 (Version None)
Quarter: 2010Q3

REPORT INFORMATION
  Report Type: 
  Country: None (occurrence: None)
  Receive Date: 20100824
  Receipt Date: 20100819
  Transmission Date: 20110219
  Serious: Yes (Life-Threatening, Hospitalization)
  Sender: FDA-Public Use
  Company Number: JP-SANOFI-AVENTIS-2010SA046435

PATIENT
  Age: 71 Year
  Sex: Male
  Weight: 59.6 kg

DRUGS (14)
  1. CLOPIDOGREL BISULFATE [Suspect]
     Indication: ANGINA UNSTABLE
     Dosage: STARTING DOSE
     Dates: start: 20090801, end: 20090801
  2. CLOPIDOGREL BISULFATE [Suspect]
     Dosage: MAINTENANCE DOSE
     Dates: start: 20090802, end: 20090807
  3. ASPIRIN [Suspect]
     Indication: ANGINA UNSTABLE
     Dates: start: 20090801
  4. PURSENNID /SCH/ [Concomitant]
     Dosage: DAILY DOSE: 12-24 MG
     Route: 048
  5. AMOXICILLIN TRIHYDRATE [Concomitant]
     Indication: PERCUTANEOUS CORONARY INTERVENTION
     Route: 048
     Dates: start: 20090803, end: 20090803
  6. OMEPRAL [Concomitant]
     Route: 048
     Dates: start: 20090801
  7. MEVALOTIN [Concomitant]
     Route: 048
     Dates: start: 20090801
  8. DIAZEPAM [Concomitant]
     Indication: PERCUTANEOUS CORONARY INTERVENTION
     Route: 048
     Dates: start: 20090803, end: 20090803
  9. OMNICAIN [Concomitant]
     Indication: PERCUTANEOUS CORONARY INTERVENTION
     Dates: start: 20090803, end: 20090803
  10. HEPARIN [Concomitant]
     Indication: PERCUTANEOUS CORONARY INTERVENTION
     Dates: start: 20090803, end: 20090803
  11. HEPARIN [Concomitant]
     Route: 042
     Dates: start: 20090803, end: 20090803
  12. NITOROL [Concomitant]
     Indication: PERCUTANEOUS CORONARY INTERVENTION
     Dates: start: 20090803, end: 20090803
  13. NITOROL [Concomitant]
     Dates: start: 20090803, end: 20090803
  14. CEFAZOLIN SODIUM [Concomitant]
     Indication: PERCUTANEOUS CORONARY INTERVENTION
     Route: 041
     Dates: start: 20090803, end: 20090805

REACTIONS (3)
  - CARDIAC TAMPONADE [None]
  - CORONARY ARTERY PERFORATION [None]
  - MYOCARDIAL INFARCTION [None]
